FAERS Safety Report 22852839 (Version 5)
Quarter: 2023Q4

REPORT INFORMATION
  Report Type: Report from Study
  Country: CN (occurrence: CN)
  Receive Date: 20230823
  Receipt Date: 20231117
  Transmission Date: 20240110
  Serious: Yes (Other)
  Sender: FDA-Public Use
  Company Number: CN-SA-0002902228

PATIENT
  Age: 62 Year
  Sex: Male
  Weight: 65 kg

DRUGS (16)
  1. INSULIN GLARGINE\LIXISENATIDE [Suspect]
     Active Substance: INSULIN GLARGINE\LIXISENATIDE
     Indication: Type 2 diabetes mellitus
     Dosage: UNK
     Route: 058
     Dates: start: 20230228
  2. INSULIN GLARGINE\LIXISENATIDE [Suspect]
     Active Substance: INSULIN GLARGINE\LIXISENATIDE
     Dosage: UNK
     Route: 058
     Dates: start: 20230713
  3. METFORMIN [Concomitant]
     Active Substance: METFORMIN HYDROCHLORIDE
     Dosage: UNK
     Route: 048
     Dates: start: 202203
  4. AMLODIPINE BESYLATE [Concomitant]
     Active Substance: AMLODIPINE BESYLATE
     Indication: Hypertension
     Dosage: UNK
     Route: 048
     Dates: start: 20230109
  5. ATORVASTATIN CALCIUM [Concomitant]
     Active Substance: ATORVASTATIN CALCIUM
     Indication: Hyperlipidaemia
     Dosage: UNK
     Route: 048
     Dates: start: 20230109
  6. HUO LUO XIAO TONG PIAN [Concomitant]
     Indication: Osteoporosis
     Dosage: UNK
     Route: 048
     Dates: start: 20230206
  7. IMRECOXIB [Concomitant]
     Active Substance: IMRECOXIB
     Indication: Osteoporosis
     Dosage: UNK
     Route: 048
     Dates: start: 20230206
  8. ALPHA LIPOIC ACID [Concomitant]
     Active Substance: .ALPHA.-LIPOIC ACID
     Dosage: 24ML
     Dates: start: 20230109, end: 20230115
  9. ALPHA LIPOIC ACID [Concomitant]
     Active Substance: .ALPHA.-LIPOIC ACID
     Dosage: 24ML
     Dates: start: 20220310, end: 20220415
  10. NIACIN [Concomitant]
     Active Substance: NIACIN
     Dosage: 50MG
     Route: 041
     Dates: start: 20230109, end: 20230115
  11. METHYLCOBALAMIN [Concomitant]
     Active Substance: METHYLCOBALAMIN
     Dosage: 1.5MG
     Route: 048
     Dates: start: 20230109, end: 20230116
  12. EPALRESTAT [Concomitant]
     Active Substance: EPALRESTAT
     Dosage: 150MG
     Route: 048
     Dates: start: 20230109, end: 202302
  13. VITAMIN D NOS [Concomitant]
     Active Substance: VITAMIN D NOS
     Dosage: 1TAB
     Route: 048
     Dates: start: 202203, end: 202204
  14. CALCIUM CITRATE MALATE [Concomitant]
     Active Substance: CALCIUM CITRATE MALATE
     Dosage: 6TAB
     Route: 048
     Dates: start: 202203, end: 202204
  15. IRBESARTAN [Concomitant]
     Active Substance: IRBESARTAN
     Dosage: 0.15G
     Route: 048
     Dates: start: 202203, end: 202204
  16. BETAHISTINE HYDROCHLORIDE [Concomitant]
     Active Substance: BETAHISTINE HYDROCHLORIDE
     Dosage: 5ML
     Route: 041
     Dates: start: 20220310, end: 20220415

REACTIONS (1)
  - Alanine aminotransferase increased [Recovered/Resolved]

NARRATIVE: CASE EVENT DATE: 20230814
